FAERS Safety Report 7071025-5 (Version None)
Quarter: 2010Q4

REPORT INFORMATION
  Report Type: 
  Country: None (occurrence: None)
  Receive Date: 20101029
  Receipt Date: 20101018
  Transmission Date: 20110411
  Serious: Yes (Other)
  Sender: FDA-Public Use
  Company Number: US-PFIZER INC-2010132602

PATIENT
  Sex: Female

DRUGS (7)
  1. TOVIAZ [Suspect]
     Indication: HYPERTONIC BLADDER
     Dosage: 4 MG, 1X/DAY
     Route: 048
     Dates: start: 20101011, end: 20101017
  2. TOVIAZ [Suspect]
     Dosage: 8MG DAILY
     Dates: start: 20101018
  3. SITAGLIPTIN [Concomitant]
     Dosage: UNK
  4. NIFEDICAL [Concomitant]
     Dosage: UNK
  5. GLIMEPIRIDE [Concomitant]
     Dosage: UNK
  6. LISINOPRIL [Concomitant]
     Dosage: UNK
  7. METOPROLOL [Concomitant]
     Dosage: UNK

REACTIONS (5)
  - DYSPHAGIA [None]
  - ENURESIS [None]
  - FATIGUE [None]
  - HYPERTONIC BLADDER [None]
  - INSOMNIA [None]
